FAERS Safety Report 4959738-X (Version None)
Quarter: 2006Q1

REPORT INFORMATION
  Report Type: 
  Country: None (occurrence: None)
  Receive Date: 20060331
  Receipt Date: 20060321
  Transmission Date: 20060701
  Serious: Yes (Other)
  Sender: FDA-Public Use
  Company Number: US-JNJFOC-20060305339

PATIENT
  Sex: Female

DRUGS (2)
  1. RISPERDAL [Suspect]
     Route: 048
  2. CLONIDINE [Concomitant]
     Indication: ANXIETY

REACTIONS (1)
  - CATARACT [None]
